FAERS Safety Report 7758856-0 (Version None)
Quarter: 2011Q3

REPORT INFORMATION
  Report Type: 
  Country: None (occurrence: None)
  Receive Date: 20110919
  Receipt Date: 20110907
  Transmission Date: 20111222
  Serious: Yes (Other)
  Sender: FDA-Public Use
  Company Number: CA-US-EMD SERONO, INC.-7068933

PATIENT
  Sex: Male

DRUGS (1)
  1. REBIF [Suspect]
     Indication: RELAPSING-REMITTING MULTIPLE SCLEROSIS
     Route: 058
     Dates: start: 20041009

REACTIONS (1)
  - CROHN'S DISEASE [None]
